FAERS Safety Report 15578901 (Version 1)
Quarter: 2018Q4

REPORT INFORMATION
  Report Type: Report from Study
  Country: US (occurrence: US)
  Receive Date: 20181102
  Receipt Date: 20181102
  Transmission Date: 20190205
  Serious: Yes (Other)
  Sender: FDA-Public Use
  Company Number: PHEH2018US045734

PATIENT
  Sex: Male

DRUGS (1)
  1. ENTRESTO [Suspect]
     Active Substance: SACUBITRIL\VALSARTAN
     Indication: PRODUCT USED FOR UNKNOWN INDICATION
     Route: 048

REACTIONS (9)
  - Gait disturbance [Unknown]
  - Limb injury [Unknown]
  - Chest pain [Unknown]
  - Fall [Unknown]
  - Hormone level abnormal [Unknown]
  - Muscle rupture [Unknown]
  - Musculoskeletal stiffness [Unknown]
  - Head injury [Unknown]
  - Musculoskeletal pain [Unknown]
